FAERS Safety Report 8771871 (Version 2)
Quarter: 2012Q4

REPORT INFORMATION
  Report Type: Report from Study
  Country: NL (occurrence: NL)
  Receive Date: 20120905
  Receipt Date: 20120920
  Transmission Date: 20130627
  Serious: Yes (Other)
  Sender: FDA-Public Use
  Company Number: NL-ROCHE-1107554

PATIENT
  Age: 30 Year
  Sex: Male
  Weight: 103 kg

DRUGS (4)
  1. ZELBORAF [Suspect]
     Indication: MALIGNANT MELANOMA
     Dosage: last dose prior to AE: 21/Aug/2012
     Route: 048
     Dates: start: 20111128
  2. DEPAKINE [Concomitant]
     Route: 065
     Dates: start: 20110201
  3. DEXAMETHASON [Concomitant]
     Route: 065
     Dates: start: 20120312
  4. DEXAMETHASON [Concomitant]
     Route: 065
     Dates: start: 20120726

REACTIONS (1)
  - Groin abscess [Recovered/Resolved]
